FAERS Safety Report 9263526 (Version 3)
Quarter: 2013Q2

REPORT INFORMATION
  Report Type: Report from Study
  Country: ES (occurrence: ES)
  Receive Date: 20130430
  Receipt Date: 20130508
  Transmission Date: 20140414
  Serious: Yes (Other)
  Sender: FDA-Public Use
  Company Number: ES-ROCHE-1219488

PATIENT
  Sex: Female
  Weight: 60 kg

DRUGS (1)
  1. PERTUZUMAB [Suspect]
     Indication: PRODUCT USED FOR UNKNOWN INDICATION
     Dosage: INITIAL DOSE 840 MG, REST OF DOSES 420 MG
     Route: 065

REACTIONS (1)
  - Disease progression [Unknown]
